FAERS Safety Report 18300883 (Version 3)
Quarter: 2022Q3

REPORT INFORMATION
  Report Type: Spontaneous
  Country: US (occurrence: US)
  Receive Date: 20200923
  Receipt Date: 20220810
  Transmission Date: 20221027
  Serious: Yes (Death, Other)
  Sender: FDA-Public Use
  Company Number: US-SAARTEMIS-SAC202009180327

PATIENT
  Age: 48 Year
  Sex: Female

DRUGS (1)
  1. ZANTAC [Suspect]
     Active Substance: RANITIDINE HYDROCHLORIDE
     Indication: Dyspepsia
     Dosage: UNK, QD
     Dates: start: 19950101, end: 20130201

REACTIONS (5)
  - Uterine cancer [Unknown]
  - Renal cancer stage II [Unknown]
  - Cervix carcinoma [Unknown]
  - Renal cancer [Unknown]
  - Death [Fatal]

NARRATIVE: CASE EVENT DATE: 20080101
